FAERS Safety Report 8431645-X (Version None)
Quarter: 2012Q2

REPORT INFORMATION
  Report Type: 
  Country: None (occurrence: None)
  Receive Date: 20120613
  Receipt Date: 20111212
  Transmission Date: 20120825
  Serious: No
  Sender: FDA-Public Use
  Company Number: US-GLAXOSMITHKLINE-A0957728A

PATIENT
  Age: 37 Year
  Sex: Female

DRUGS (4)
  1. TOPAMAX [Concomitant]
  2. RANITIDINE [Concomitant]
  3. SAVELLA [Concomitant]
  4. TREXIMET [Suspect]
     Indication: MIGRAINE
     Dosage: 1TAB AS REQUIRED
     Route: 048
     Dates: start: 20111201

REACTIONS (3)
  - TEMPERATURE INTOLERANCE [None]
  - DRUG INEFFECTIVE [None]
  - PRODUCT QUALITY ISSUE [None]
